FAERS Safety Report 9025965 (Version 1)
Quarter: 2013Q1

REPORT INFORMATION
  Report Type: Spontaneous
  Country: JP (occurrence: JP)
  Receive Date: 20130122
  Receipt Date: 20130122
  Transmission Date: 20140127
  Serious: Yes (Other)
  Sender: FDA-Public Use
  Company Number: JP-ROCHE-1181378

PATIENT
  Age: 61 Year
  Sex: Female

DRUGS (2)
  1. AVASTIN [Suspect]
     Indication: BREAST CANCER
     Route: 041
     Dates: start: 20120118
  2. PACLITAXEL [Suspect]
     Indication: BREAST CANCER
     Route: 041

REACTIONS (1)
  - Rash generalised [Unknown]
